FAERS Safety Report 7280251-1 (Version None)
Quarter: 2011Q1

REPORT INFORMATION
  Report Type: 
  Country: None (occurrence: None)
  Receive Date: 20110208
  Receipt Date: 20110128
  Transmission Date: 20110831
  Serious: Yes (Hospitalization)
  Sender: FDA-Public Use
  Company Number: CH-BRACCO-000054

PATIENT
  Sex: Male

DRUGS (11)
  1. METFIN [Concomitant]
  2. BETOPTIC [Concomitant]
  3. CELEBREX [Concomitant]
  4. METOPROLOL TARTRATE [Concomitant]
     Route: 048
  5. DAFALGAN [Concomitant]
  6. ASPIRIN [Concomitant]
     Route: 048
     Dates: start: 20101207
  7. IOPAMIRO [Suspect]
     Indication: SPINAL COLUMN STENOSIS
     Dosage: 1200 MG
     Route: 037
     Dates: start: 20101206, end: 20101206
  8. PRAXILENE [Concomitant]
  9. SIMCORA [Concomitant]
     Dosage: HALF A TABLET OF 40 MG
  10. COVERSUM [Concomitant]
  11. IOPAMIRO [Suspect]
     Indication: SPINAL MYELOGRAM
     Dosage: 1200 MG
     Route: 037
     Dates: start: 20101206, end: 20101206

REACTIONS (3)
  - INFECTION [None]
  - SEPSIS [None]
  - MENINGITIS BACTERIAL [None]
